FAERS Safety Report 5233341-9 (Version None)
Quarter: 2007Q1

REPORT INFORMATION
  Report Type: 
  Country: None (occurrence: None)
  Receive Date: 20070206
  Receipt Date: 20070122
  Transmission Date: 20070707
  Serious: Yes (Disabling)
  Sender: FDA-Public Use
  Company Number: 0104-2828

PATIENT
  Age: 37 Year
  Sex: Male
  Weight: 99.7913 kg

DRUGS (7)
  1. ADVICOR [Suspect]
     Indication: BLOOD CHOLESTEROL INCREASED
     Dates: start: 20041215, end: 20050511
  2. ADVICOR [Suspect]
     Indication: BLOOD TRIGLYCERIDES INCREASED
     Dates: start: 20041215, end: 20050511
  3. MOBIC [Concomitant]
  4. TOPROL-XL [Concomitant]
  5. WELLBUTRIN [Concomitant]
  6. VICODIN [Concomitant]
  7. PREDNISONE 50MG TAB [Concomitant]

REACTIONS (35)
  - ACTIVITIES OF DAILY LIVING IMPAIRED [None]
  - AMNESIA [None]
  - ANXIETY [None]
  - ARTHRALGIA [None]
  - COLONIC POLYP [None]
  - DEPRESSION [None]
  - DISTURBANCE IN ATTENTION [None]
  - DUODENITIS [None]
  - DYSPHAGIA [None]
  - EATING DISORDER [None]
  - EDUCATIONAL PROBLEM [None]
  - ERECTILE DYSFUNCTION [None]
  - FEAR [None]
  - GASTROINTESTINAL DISORDER [None]
  - GASTROOESOPHAGEAL REFLUX DISEASE [None]
  - GYNAECOMASTIA [None]
  - HEART RATE INCREASED [None]
  - HEPATIC MASS [None]
  - HEPATIC STEATOSIS [None]
  - HYPERTENSION [None]
  - IMPAIRED WORK ABILITY [None]
  - INTERVERTEBRAL DISC COMPRESSION [None]
  - INTERVERTEBRAL DISC PROTRUSION [None]
  - MALAISE [None]
  - MUSCLE TWITCHING [None]
  - MYOPATHY [None]
  - OESOPHAGEAL DILATATION [None]
  - OESOPHAGEAL STENOSIS [None]
  - RADICULAR PAIN [None]
  - SPINAL OSTEOARTHRITIS [None]
  - STRESS [None]
  - SUICIDAL BEHAVIOUR [None]
  - SUICIDAL IDEATION [None]
  - TREMOR [None]
  - WEIGHT INCREASED [None]
